FAERS Safety Report 6463163-2 (Version None)
Quarter: 2009Q4

REPORT INFORMATION
  Report Type: 
  Country: None (occurrence: None)
  Receive Date: 20091123
  Receipt Date: 20091116
  Transmission Date: 20100525
  Serious: Yes (Hospitalization)
  Sender: FDA-Public Use
  Company Number: TPA2009A03783

PATIENT
  Age: 70 Year
  Sex: Female
  Weight: 91.6266 kg

DRUGS (4)
  1. ACTOS [Suspect]
     Indication: TYPE 2 DIABETES MELLITUS
     Dosage: 45 MG, 1 IN 1 D, PER ORAL
     Route: 048
     Dates: start: 20091020, end: 20091104
  2. ZETIA [Concomitant]
  3. METFORMIN HCL [Concomitant]
  4. PRAVASTATIN [Concomitant]

REACTIONS (2)
  - CARDIAC FAILURE CONGESTIVE [None]
  - PERICARDIAL EFFUSION [None]
